FAERS Safety Report 7342816-8 (Version None)
Quarter: 2011Q1

REPORT INFORMATION
  Report Type: 
  Country: None (occurrence: None)
  Receive Date: 20110310
  Receipt Date: 20110303
  Transmission Date: 20110831
  Serious: Yes (Other)
  Sender: FDA-Public Use
  Company Number: US-AMGEN-USASP2011012147

PATIENT
  Age: 64 Year
  Sex: Female

DRUGS (1)
  1. ENBREL [Suspect]
     Indication: PUSTULAR PSORIASIS
     Dosage: 50 MG, QWK
     Dates: start: 20081201, end: 20090101

REACTIONS (10)
  - PAIN IN EXTREMITY [None]
  - NEUROPATHY PERIPHERAL [None]
  - GAIT DISTURBANCE [None]
  - DIABETIC FOOT [None]
  - PSORIASIS [None]
  - CORONARY ARTERY DISEASE [None]
  - PERIPHERAL VASCULAR DISORDER [None]
  - SLEEP APNOEA SYNDROME [None]
  - HYPOAESTHESIA [None]
  - STAPHYLOCOCCAL INFECTION [None]
